FAERS Safety Report 23408007 (Version 1)
Quarter: 2024Q1

REPORT INFORMATION
  Report Type: Spontaneous
  Country: CA (occurrence: CA)
  Receive Date: 20240117
  Receipt Date: 20240117
  Transmission Date: 20240409
  Serious: Yes (Hospitalization, Other)
  Sender: FDA-Public Use
  Company Number: CA-drreddys-USA/CAN/19/0117480

PATIENT
  Age: 53 Year
  Sex: Male

DRUGS (15)
  1. ATORVASTATIN [Suspect]
     Active Substance: ATORVASTATIN
     Indication: Product used for unknown indication
  2. ATORVASTATIN [Suspect]
     Active Substance: ATORVASTATIN
  3. METFORMIN HYDROCHLORIDE [Suspect]
     Active Substance: METFORMIN HYDROCHLORIDE
     Indication: Product used for unknown indication
     Route: 048
  4. SANDOSTATIN [Suspect]
     Active Substance: OCTREOTIDE ACETATE
     Indication: Acromegaly
     Route: 030
  5. SANDOSTATIN [Suspect]
     Active Substance: OCTREOTIDE ACETATE
     Route: 030
  6. SANDOSTATIN [Suspect]
     Active Substance: OCTREOTIDE ACETATE
     Dosage: 3 EVERY 1 DAYS
     Route: 058
  7. BISOPROLOL FUMARATE [Concomitant]
     Active Substance: BISOPROLOL FUMARATE
     Indication: Product used for unknown indication
     Route: 065
  8. BOSENTAN [Concomitant]
     Active Substance: BOSENTAN
     Indication: Product used for unknown indication
     Route: 065
  9. DOSTINEX [Concomitant]
     Active Substance: CABERGOLINE
     Indication: Product used for unknown indication
     Route: 048
  10. FUROSEMIDE [Concomitant]
     Active Substance: FUROSEMIDE
     Indication: Product used for unknown indication
     Route: 065
  11. METFORMIN FC [Concomitant]
     Indication: Product used for unknown indication
     Route: 065
  12. SOMAVERT [Concomitant]
     Active Substance: PEGVISOMANT
     Indication: Product used for unknown indication
     Route: 065
  13. TAMSULOSIN HYDROCHLORIDE [Concomitant]
     Active Substance: TAMSULOSIN HYDROCHLORIDE
     Indication: Product used for unknown indication
     Route: 065
  14. PERINDOPRIL ARGININE [Concomitant]
     Active Substance: PERINDOPRIL ARGININE
     Indication: Product used for unknown indication
     Dosage: TABLET (ORALLY DISINTEGRATING)
     Route: 048
  15. PERINDOPRIL ARGININE [Concomitant]
     Active Substance: PERINDOPRIL ARGININE
     Route: 048

REACTIONS (25)
  - Abdominal distension [Recovered/Resolved]
  - Blister [Recovered/Resolved]
  - Blood cholesterol abnormal [Recovered/Resolved]
  - Blood pressure increased [Recovered/Resolved]
  - Faeces soft [Recovered/Resolved]
  - Gastroenteritis viral [Recovered/Resolved]
  - Heart rate decreased [Recovered/Resolved]
  - Injection site erosion [Recovered/Resolved]
  - Insulin-like growth factor increased [Recovered/Resolved]
  - Renal haematoma [Recovered/Resolved]
  - Lactose intolerance [Recovered/Resolved]
  - Erythema [Recovered/Resolved]
  - Blood pressure fluctuation [Recovered/Resolved]
  - Pain [Recovered/Resolved]
  - Injection site injury [Recovered/Resolved]
  - Headache [Recovered/Resolved]
  - Dyspnoea exertional [Recovered/Resolved]
  - Diarrhoea [Recovered/Resolved]
  - Fatigue [Recovered/Resolved]
  - Arthralgia [Recovered/Resolved]
  - Flatulence [Recovered/Resolved]
  - Needle issue [Recovered/Resolved]
  - Therapeutic response decreased [Recovered/Resolved]
  - Product dispensing error [Recovered/Resolved]
  - Inappropriate schedule of product administration [Recovered/Resolved]
